FAERS Safety Report 25412669 (Version 1)
Quarter: 2025Q2

REPORT INFORMATION
  Report Type: Spontaneous
  Country: US (occurrence: None)
  Receive Date: 20250607
  Receipt Date: 20250607
  Transmission Date: 20250717
  Serious: Yes (Disabling)
  Sender: FDA-CTU
  Company Number: None

PATIENT
  Age: 30 Year
  Sex: Male
  Weight: 76.95 kg

DRUGS (6)
  1. ADDERALL [Suspect]
     Active Substance: AMPHETAMINE ASPARTATE\AMPHETAMINE SULFATE\DEXTROAMPHETAMINE SACCHARATE\DEXTROAMPHETAMINE SULFATE
     Indication: Attention deficit hyperactivity disorder
     Dates: start: 20140815, end: 20210115
  2. PHOSPHATIDYLESERINE [Concomitant]
  3. VITAMINS [Concomitant]
     Active Substance: VITAMINS
  4. MAGNESIUM [Concomitant]
     Active Substance: MAGNESIUM
  5. LORATADINE [Concomitant]
     Active Substance: LORATADINE
  6. LIQUID IODINE PLUS DAILY [Concomitant]

REACTIONS (5)
  - Product prescribing issue [None]
  - Drug abuse [None]
  - Drug dependence [None]
  - Psychotic disorder [None]
  - Hallucination, auditory [None]

NARRATIVE: CASE EVENT DATE: 20210115
